FAERS Safety Report 10638696 (Version 1)
Quarter: 2014Q4

REPORT INFORMATION
  Report Type: Spontaneous
  Country: US (occurrence: None)
  Receive Date: 20141121
  Receipt Date: 20141121
  Transmission Date: 20150529
  Serious: No
  Sender: FDA-Public Use
  Company Number: 163-10004-14090511

PATIENT
  Age: 78 Year
  Sex: Female
  Weight: 81.19 kg

DRUGS (4)
  1. OTEZLA [Suspect]
     Active Substance: APREMILAST
     Indication: PSORIATIC ARTHROPATHY
     Dosage: 60 MG,  2 IN 1 D,  PO
     Route: 048
     Dates: start: 201406
  2. CIPROFLOXACIN HCL (CIPROFLOXACIN HYDROCHLORIDE) [Concomitant]
  3. VITAMINS (VITAMINS) [Concomitant]
  4. CARVIDOL (CARVEDILOL) [Concomitant]

REACTIONS (3)
  - Tooth infection [None]
  - Rash [None]
  - Asthenia [None]

NARRATIVE: CASE EVENT DATE: 201406
